FAERS Safety Report 4668016-8 (Version None)
Quarter: 2005Q2

REPORT INFORMATION
  Report Type: 
  Country: None (occurrence: None)
  Receive Date: 20050520
  Receipt Date: 20050510
  Transmission Date: 20051028
  Serious: Yes (Hospitalization)
  Sender: FDA-Public Use
  Company Number: FR-ABBOTT-05P-056-0300226-00

PATIENT
  Age: 45 Year
  Sex: Male

DRUGS (9)
  1. DEPAKENE [Suspect]
     Indication: DRUG USE FOR UNKNOWN INDICATION
     Route: 048
     Dates: start: 20050218, end: 20050307
  2. METRONIDAZOLE [Suspect]
     Indication: DRUG USE FOR UNKNOWN INDICATION
     Route: 048
     Dates: start: 20050216, end: 20050307
  3. METRONIDAZOLE [Suspect]
     Route: 048
     Dates: start: 20050126, end: 20050202
  4. CARBAMAZEPINE [Suspect]
     Indication: DRUG USE FOR UNKNOWN INDICATION
     Route: 048
     Dates: start: 20050202, end: 20050307
  5. THIAMPHENICOL [Concomitant]
     Indication: DRUG USE FOR UNKNOWN INDICATION
     Route: 042
     Dates: end: 20050126
  6. THIAMPHENICOL [Concomitant]
     Route: 042
     Dates: start: 20050202, end: 20050216
  7. CLINDAMYCIN HYDROCHLORIDE [Concomitant]
     Indication: DRUG USE FOR UNKNOWN INDICATION
     Dates: start: 20050126, end: 20050202
  8. CLINDAMYCIN HYDROCHLORIDE [Concomitant]
     Dates: start: 20050216, end: 20050307
  9. CLONAZEPAM [Concomitant]
     Dates: start: 20050307

REACTIONS (5)
  - BLOOD BILIRUBIN INCREASED [None]
  - CYTOLYTIC HEPATITIS [None]
  - JAUNDICE [None]
  - PROTHROMBIN TIME SHORTENED [None]
  - TRANSAMINASES INCREASED [None]
